FAERS Safety Report 20188312 (Version 1)
Quarter: 2021Q4

REPORT INFORMATION
  Report Type: Spontaneous
  Country: US (occurrence: US)
  Receive Date: 20211215
  Receipt Date: 20211215
  Transmission Date: 20220303
  Serious: Yes (Other)
  Sender: FDA-Public Use
  Company Number: US-PURDUE-USA-2020-0192422

PATIENT
  Sex: Male

DRUGS (1)
  1. HYSINGLA ER [Suspect]
     Active Substance: HYDROCODONE BITARTRATE
     Indication: Product used for unknown indication
     Dosage: UNK
     Route: 048

REACTIONS (15)
  - Overdose [Unknown]
  - Drug dependence [Unknown]
  - Skin abrasion [Unknown]
  - Contusion [Unknown]
  - Haematoma [Unknown]
  - Intervertebral disc protrusion [Unknown]
  - Productive cough [Unknown]
  - Nasal discharge discolouration [Unknown]
  - Wheezing [Unknown]
  - Rhinitis [Unknown]
  - Upper-airway cough syndrome [Unknown]
  - Bronchitis [Unknown]
  - Sinusitis [Unknown]
  - Muscle strain [Unknown]
  - Muscle spasms [Unknown]
